FAERS Safety Report 4648924-4 (Version None)
Quarter: 2005Q2

REPORT INFORMATION
  Report Type: 
  Country: None (occurrence: None)
  Receive Date: 20050427
  Receipt Date: 20050418
  Transmission Date: 20051028
  Serious: Yes (Death, Other)
  Sender: FDA-Public Use
  Company Number: US_2005-000122

PATIENT
  Age: 59 Year
  Sex: Male
  Weight: 106.6 kg

DRUGS (2)
  1. GM-CSF (SARGRAMOSTIM) INJECTION [Suspect]
     Indication: MALIGNANT MELANOMA
     Dosage: 250 MCG/D,D1 Q28DAYS, SUBCUTANEOUS
     Route: 058
     Dates: start: 20040327, end: 20041229
  2. THALIDOMIDE (THALIDOMIDE) [Suspect]
     Indication: MALIGNANT MELANOMA
     Dosage: 200 MG/D, D1 4 Q28DAYS, ORAL
     Route: 048
     Dates: start: 20040327, end: 20041229

REACTIONS (9)
  - BENIGN PROSTATIC HYPERPLASIA [None]
  - DEEP VEIN THROMBOSIS [None]
  - DILATATION VENTRICULAR [None]
  - DRUG INTERACTION POTENTIATION [None]
  - HEPATIC CONGESTION [None]
  - MYOCARDIAL FIBROSIS [None]
  - OEDEMA PERIPHERAL [None]
  - PULMONARY EMBOLISM [None]
  - SPLEEN CONGESTION [None]
